FAERS Safety Report 25865033 (Version 3)
Quarter: 2025Q4

REPORT INFORMATION
  Report Type: Report from Study
  Country: US (occurrence: US)
  Receive Date: 20250930
  Receipt Date: 20251022
  Transmission Date: 20260118
  Serious: Yes (Death, Life-Threatening, Hospitalization)
  Sender: INSMED
  Company Number: US-INSMED, INC.-2025-03813-US

PATIENT
  Age: 75 Year
  Sex: Female

DRUGS (11)
  1. BRINSUPRI [Suspect]
     Active Substance: BRENSOCATIB
     Indication: Bronchiectasis
     Dosage: 10 MILLIGRAM, QD
     Route: 048
     Dates: start: 202509, end: 20250917
  2. BRINSUPRI [Suspect]
     Active Substance: BRENSOCATIB
     Indication: Lower respiratory tract infection
  3. ALBUTEROL [Concomitant]
     Active Substance: ALBUTEROL
     Indication: Product used for unknown indication
     Dosage: UNK, UNK
     Route: 065
  4. CALCIUM CARBONATE [Concomitant]
     Active Substance: CALCIUM CARBONATE
     Indication: Product used for unknown indication
     Dosage: UNK, UNK
     Route: 065
  5. CREON [Concomitant]
     Active Substance: PANCRELIPASE AMYLASE\PANCRELIPASE LIPASE\PANCRELIPASE PROTEASE
     Indication: Product used for unknown indication
     Dosage: UNK, UNK
     Route: 065
  6. LEVALBUTEROL [Concomitant]
     Active Substance: LEVALBUTEROL
     Indication: Product used for unknown indication
     Dosage: UNK, UNK
     Route: 065
  7. MOTEGRITY [Concomitant]
     Active Substance: PRUCALOPRIDE SUCCINATE
     Indication: Product used for unknown indication
     Dosage: UNK, UNK
     Route: 065
  8. OXYGEN [Concomitant]
     Active Substance: OXYGEN
     Indication: Product used for unknown indication
     Dosage: UNK, UNK
     Route: 065
  9. PEPCID [Concomitant]
     Active Substance: FAMOTIDINE
     Indication: Product used for unknown indication
     Dosage: UNK, UNK
     Route: 065
  10. RECLAST [Concomitant]
     Active Substance: ZOLEDRONIC ACID
     Indication: Product used for unknown indication
     Dosage: UNK, UNK
     Route: 065
  11. RESTASIS [Concomitant]
     Active Substance: CYCLOSPORINE
     Indication: Product used for unknown indication
     Dosage: UNK, UNK
     Route: 047

REACTIONS (9)
  - Death [Fatal]
  - Respiratory tract congestion [Not Recovered/Not Resolved]
  - Sputum retention [Unknown]
  - Increased viscosity of bronchial secretion [Not Recovered/Not Resolved]
  - Retching [Not Recovered/Not Resolved]
  - Dyspnoea [Not Recovered/Not Resolved]
  - Sputum abnormal [Unknown]
  - Sputum discoloured [Unknown]
  - Productive cough [Unknown]

NARRATIVE: CASE EVENT DATE: 20250901
